FAERS Safety Report 23989463 (Version 1)
Quarter: 2024Q2

REPORT INFORMATION
  Report Type: Report from Study
  Country: US (occurrence: US)
  Receive Date: 20240619
  Receipt Date: 20240619
  Transmission Date: 20240716
  Serious: Yes (Other)
  Sender: FDA-Public Use
  Company Number: US-ABBVIE-5693679

PATIENT
  Sex: Female

DRUGS (1)
  1. VENCLEXTA [Suspect]
     Active Substance: VENETOCLAX
     Indication: Chronic lymphocytic leukaemia
     Dosage: FORM STRENGTH: 100MG?TAKE 2 TABLETS BY MOUTH ONCE DAILY WITH FOOD AND A FULL GLASS OF WATER AT BR...
     Route: 048

REACTIONS (7)
  - Seizure [Not Recovered/Not Resolved]
  - Stress [Not Recovered/Not Resolved]
  - Dizziness [Not Recovered/Not Resolved]
  - Cough [Not Recovered/Not Resolved]
  - Vertigo [Not Recovered/Not Resolved]
  - Diarrhoea [Not Recovered/Not Resolved]
  - Tremor [Not Recovered/Not Resolved]

NARRATIVE: CASE EVENT DATE: 20240101
